FAERS Safety Report 16839173 (Version 1)
Quarter: 2019Q3

REPORT INFORMATION
  Report Type: Spontaneous
  Country: GB (occurrence: GB)
  Receive Date: 20190923
  Receipt Date: 20190923
  Transmission Date: 20191005
  Serious: Yes (Other)
  Sender: FDA-Public Use
  Company Number: GB-MYLANLABS-2019M1087857

PATIENT
  Age: 32 Year
  Sex: Female

DRUGS (2)
  1. HYDROCORTISONE. [Concomitant]
     Active Substance: HYDROCORTISONE
     Indication: ANAPHYLACTIC REACTION
     Dosage: 200 MILLIGRAM
     Route: 042
     Dates: start: 20180811
  2. EPINEPHRINE. [Suspect]
     Active Substance: EPINEPHRINE
     Indication: ANAPHYLACTIC REACTION
     Dosage: 1 MILLIGRAM (1:1000)
     Route: 042
     Dates: start: 20180811, end: 20180811

REACTIONS (3)
  - Accidental overdose [Unknown]
  - Incorrect route of product administration [Unknown]
  - Chest pain [Unknown]

NARRATIVE: CASE EVENT DATE: 20180811
